FAERS Safety Report 10058675 (Version 1)
Quarter: 2014Q2

REPORT INFORMATION
  Report Type: Spontaneous
  Country: FR (occurrence: FR)
  Receive Date: 20140404
  Receipt Date: 20140404
  Transmission Date: 20141212
  Serious: Yes (Other)
  Sender: FDA-Public Use
  Company Number: FR-009507513-1403FRA013226

PATIENT
  Age: 57 Year
  Sex: Female

DRUGS (12)
  1. TEMODAL [Suspect]
     Indication: GLIOBLASTOMA
     Dosage: UNK
  2. BACTRIM [Suspect]
     Indication: FEBRILE NEUTROPENIA
     Dosage: UNK
     Dates: start: 2014
  3. KEPPRA [Suspect]
  4. AMLODIPINE [Suspect]
  5. AVASTIN (BEVACIZUMAB) [Concomitant]
     Indication: GLIOBLASTOMA
     Route: 042
  6. IMOVANE [Concomitant]
  7. INEXIUM [Concomitant]
  8. SOLUPRED [Concomitant]
  9. PRIMPERAN [Concomitant]
  10. ALPRAZOLAM [Concomitant]
  11. DAFALGAN [Concomitant]
  12. DIFFU-K [Concomitant]

REACTIONS (1)
  - Toxic skin eruption [Unknown]
